FAERS Safety Report 7356780-9 (Version None)
Quarter: 2011Q1

REPORT INFORMATION
  Report Type: 
  Country: None (occurrence: None)
  Receive Date: 20110316
  Receipt Date: 20110307
  Transmission Date: 20110831
  Serious: Yes (Other)
  Sender: FDA-Public Use
  Company Number: US-AMGEN-USASP2011012851

PATIENT
  Age: 34 Year
  Sex: Male

DRUGS (1)
  1. ENBREL [Suspect]
     Indication: PSORIASIS
     Dosage: 50 MG, 2 TIMES/WK
     Dates: start: 20060501, end: 20110220

REACTIONS (5)
  - OEDEMA [None]
  - MASS [None]
  - CELLULITIS [None]
  - ABSCESS [None]
  - PHLEBITIS SUPERFICIAL [None]
